FAERS Safety Report 8697813 (Version 2)
Quarter: 2013Q2

REPORT INFORMATION
  Report Type: Report from Study
  Country: CA (occurrence: CA)
  Receive Date: 20120801
  Receipt Date: 20130506
  Transmission Date: 20140414
  Serious: Yes (Hospitalization)
  Sender: FDA-Public Use
  Company Number: CA-UCBSA-062652

PATIENT
  Age: 59 Year
  Sex: Female

DRUGS (11)
  1. LEVOCARB [Concomitant]
  2. NORVASC [Concomitant]
  3. HYDROCHLOROTHIAZIDE [Concomitant]
  4. OXYCONTIN [Concomitant]
  5. PAXIL [Concomitant]
  6. CIMZIA [Suspect]
     Indication: RHEUMATOID ARTHRITIS
     Route: 058
     Dates: start: 20091219, end: 20120601
  7. METOPROLOL [Concomitant]
  8. METHOTREXATE [Concomitant]
     Route: 048
  9. PREDNISONE [Concomitant]
  10. DIOVAN [Concomitant]
  11. NEXIUM [Concomitant]

REACTIONS (1)
  - Arthritis infective [Recovered/Resolved]
